FAERS Safety Report 9194118 (Version 2)
Quarter: 2013Q2

REPORT INFORMATION
  Report Type: Spontaneous
  Country: US (occurrence: US)
  Receive Date: 20130327
  Receipt Date: 20130524
  Transmission Date: 20140414
  Serious: Yes (Hospitalization)
  Sender: FDA-Public Use
  Company Number: US-ELI_LILLY_AND_COMPANY-US201205009637

PATIENT
  Age: 79 Year
  Sex: Female

DRUGS (2)
  1. FORTEO [Suspect]
     Indication: OSTEOPOROSIS
     Dosage: UNK UNK, QD
     Route: 065
  2. FORTEO [Suspect]
     Dosage: UNK, QD

REACTIONS (8)
  - Intestinal obstruction [Unknown]
  - Fall [Unknown]
  - Wrist fracture [Unknown]
  - Hand fracture [Unknown]
  - Tooth fracture [Unknown]
  - Lip injury [Unknown]
  - Injection site bruising [Unknown]
  - Cardiac disorder [Unknown]
